FAERS Safety Report 7045670-7 (Version None)
Quarter: 2010Q4

REPORT INFORMATION
  Report Type: 
  Country: None (occurrence: None)
  Receive Date: 20101014
  Receipt Date: 20101005
  Transmission Date: 20110411
  Serious: Yes (Other)
  Sender: FDA-Public Use
  Company Number: TR-ASTRAZENECA-2010SE46255

PATIENT
  Age: 39 Year
  Sex: Female

DRUGS (29)
  1. QUETIAPINE [Suspect]
     Indication: MANIA
     Route: 048
     Dates: start: 20060101
  2. QUETIAPINE [Suspect]
     Indication: BIPOLAR DISORDER
     Route: 048
     Dates: start: 20060101
  3. QUETIAPINE [Suspect]
     Route: 048
     Dates: start: 20070101, end: 20090610
  4. QUETIAPINE [Suspect]
     Route: 048
     Dates: start: 20070101, end: 20090610
  5. QUETIAPINE [Suspect]
     Route: 048
     Dates: start: 20090101
  6. QUETIAPINE [Suspect]
     Route: 048
     Dates: start: 20090101
  7. QUETIAPINE [Suspect]
     Route: 048
     Dates: start: 20090101
  8. QUETIAPINE [Suspect]
     Route: 048
     Dates: start: 20090101
  9. QUETIAPINE [Suspect]
     Route: 048
  10. QUETIAPINE [Suspect]
     Route: 048
  11. QUETIAPINE [Suspect]
     Dosage: 200 MG TABLET 8-9 TIMES DAILY
     Route: 048
  12. QUETIAPINE [Suspect]
     Dosage: 200 MG TABLET 8-9 TIMES DAILY
     Route: 048
  13. QUETIAPINE [Suspect]
     Route: 048
  14. QUETIAPINE [Suspect]
     Route: 048
  15. QUETIAPINE [Suspect]
     Route: 048
  16. QUETIAPINE [Suspect]
     Route: 048
  17. QUETIAPINE [Suspect]
     Route: 048
  18. QUETIAPINE [Suspect]
     Route: 048
  19. OLANZAPINE [Suspect]
     Indication: MANIA
  20. OLANZAPINE [Suspect]
     Indication: BIPOLAR DISORDER
  21. OLANZAPINE [Suspect]
     Dates: start: 20070101, end: 20090610
  22. OLANZAPINE [Suspect]
     Dates: start: 20070101, end: 20090610
  23. OLANZAPINE [Suspect]
     Dates: start: 20090101
  24. OLANZAPINE [Suspect]
     Dates: start: 20090101
  25. OLANZAPINE [Suspect]
  26. OLANZAPINE [Suspect]
  27. LITHIUM [Concomitant]
     Indication: MANIA
  28. LITHIUM [Concomitant]
     Indication: BIPOLAR DISORDER
  29. PROPRANOLOL [Concomitant]
     Indication: TREMOR

REACTIONS (4)
  - DRUG ABUSE [None]
  - DRUG DOSE OMISSION [None]
  - LEUKOPENIA [None]
  - OVERDOSE [None]
